FAERS Safety Report 4738749-3 (Version None)
Quarter: 2005Q3

REPORT INFORMATION
  Report Type: 
  Country: None (occurrence: None)
  Receive Date: 20050804
  Receipt Date: 20050722
  Transmission Date: 20060218
  Serious: Yes (Hospitalization)
  Sender: FDA-Public Use
  Company Number: 2005106085

PATIENT
  Age: 76 Year
  Sex: Female

DRUGS (3)
  1. AMLODIPINE [Suspect]
     Indication: HYPERTENSIVE HEART DISEASE
     Dosage: (10 MG); LONG TERM
     Dates: end: 20030116
  2. DILTIAZEM [Suspect]
     Indication: HYPERTENSIVE HEART DISEASE
     Dosage: 200 MG (200 MG, 1 IN 1 D); LONG TERM
     Dates: end: 20030116
  3. DIGOXIN [Suspect]
     Indication: HYPERTENSIVE HEART DISEASE
     Dosage: LONG TERM
     Dates: end: 20030116

REACTIONS (2)
  - ATRIAL FIBRILLATION [None]
  - DRUG LEVEL INCREASED [None]
